FAERS Safety Report 4914224-8 (Version None)
Quarter: 2006Q1

REPORT INFORMATION
  Report Type: 
  Country: None (occurrence: None)
  Receive Date: 20060213
  Receipt Date: 20060203
  Transmission Date: 20060701
  Serious: Yes (Hospitalization, Other)
  Sender: FDA-Public Use
  Company Number: 199911152GDS

PATIENT
  Age: 69 Year
  Sex: Female

DRUGS (1)
  1. CIPRO [Suspect]
     Indication: CELLULITIS
     Dosage: 500 MG, TOTAL DAILY, ORAL
     Route: 048

REACTIONS (2)
  - DEEP VEIN THROMBOSIS [None]
  - PULMONARY EMBOLISM [None]
